FAERS Safety Report 8472619 (Version 2)
Quarter: 2012Q4

REPORT INFORMATION
  Report Type: Report from Study
  Country: ES (occurrence: ES)
  Receive Date: 20120322
  Receipt Date: 20120927
  Transmission Date: 20130627
  Serious: Yes (Other)
  Sender: FDA-Public Use
  Company Number: ES-JNJFOC-20120307579

PATIENT
  Age: 73 Year
  Sex: Male

DRUGS (1)
  1. USTEKINUMAB [Suspect]
     Indication: PSORIASIS
     Route: 058
     Dates: start: 201002

REACTIONS (2)
  - Bronchitis [Recovered/Resolved]
  - Inappropriate schedule of drug administration [Unknown]
